FAERS Safety Report 5261366-6 (Version None)
Quarter: 2007Q1

REPORT INFORMATION
  Report Type: 
  Country: None (occurrence: None)
  Receive Date: 20070307
  Receipt Date: 20070220
  Transmission Date: 20070707
  Serious: Yes (Hospitalization)
  Sender: FDA-Public Use
  Company Number: 3654256A

PATIENT
  Sex: Female

DRUGS (5)
  1. PREVIDENT 5000 PLUS SPEARMINT TOOTHPASTE [Suspect]
     Indication: GINGIVAL DISORDER
     Dosage: 1/NIGHT, ORAL
     Route: 048
     Dates: start: 20061002, end: 20070101
  2. PREVIDENT 5000 PLUS SPEARMINT TOOTHPASTE [Suspect]
     Indication: TOOTH DISORDER
     Dosage: 1/NIGHT, ORAL
     Route: 048
     Dates: start: 20061002, end: 20070101
  3. HYDROXYUREA [Concomitant]
  4. ^COLESTRYAMENE^ [Concomitant]
  5. ^ANETENILO^ [Concomitant]

REACTIONS (6)
  - ANXIETY [None]
  - ASTHENIA [None]
  - DIZZINESS [None]
  - DYSPNOEA [None]
  - HEADACHE [None]
  - HEART RATE INCREASED [None]
